FAERS Safety Report 5319515-7 (Version None)
Quarter: 2007Q2

REPORT INFORMATION
  Report Type: 
  Country: None (occurrence: None)
  Receive Date: 20070508
  Receipt Date: 20070427
  Transmission Date: 20071010
  Serious: Yes (Hospitalization)
  Sender: FDA-Public Use
  Company Number: IN-PFIZER INC-2007030834

PATIENT
  Age: 30 Year
  Sex: Female

DRUGS (1)
  1. MEDROL [Suspect]
     Indication: POLYP
     Route: 048
     Dates: start: 20070318, end: 20070319

REACTIONS (4)
  - ABDOMINAL PAIN [None]
  - DYSPEPSIA [None]
  - GASTRITIS [None]
  - VOMITING [None]
